FAERS Safety Report 8985100 (Version 1)
Quarter: 2012Q4

REPORT INFORMATION
  Report Type: 
  Country: US (occurrence: US)
  Receive Date: 20121226
  Receipt Date: 20121226
  Transmission Date: 20130627
  Serious: Yes (Death)
  Sender: FDA-Public Use
  Company Number: US-AMGEN-USASP2012082574

PATIENT
  Age: 62 Year
  Sex: Male

DRUGS (2)
  1. ENBREL [Suspect]
     Indication: RHEUMATOID ARTHRITIS
     Dosage: 50 mg, UNK
     Dates: start: 20080926
  2. NEXAVAR [Concomitant]
     Indication: RHEUMATOID ARTHRITIS
     Dosage: 200 mg, bid
     Route: 048
     Dates: start: 20080926

REACTIONS (1)
  - Death [Fatal]
